FAERS Safety Report 6938373-8 (Version None)
Quarter: 2010Q3

REPORT INFORMATION
  Report Type: 
  Country: None (occurrence: None)
  Receive Date: 20100824
  Receipt Date: 20100817
  Transmission Date: 20110219
  Serious: Yes (Other)
  Sender: FDA-Public Use
  Company Number: DE-PFIZER INC-2010095187

PATIENT
  Age: 72 Year
  Sex: Female
  Weight: 54 kg

DRUGS (3)
  1. XALATAN [Suspect]
     Dosage: IN THE EVENING
     Route: 047
  2. BISOPROLOL [Interacting]
     Dosage: 1/4 OF THE REGULAR 10 MG DOSE ONCE A DAY
  3. ALPHAGAN [Concomitant]
     Dosage: UNK
     Route: 047

REACTIONS (10)
  - DRUG INTERACTION [None]
  - DYSAESTHESIA [None]
  - DYSAESTHESIA PHARYNX [None]
  - HYPOAESTHESIA FACIAL [None]
  - NASAL DISCOMFORT [None]
  - ORAL DISCOMFORT [None]
  - ORAL DYSAESTHESIA [None]
  - PAIN IN JAW [None]
  - PHARYNGEAL HYPOAESTHESIA [None]
  - THROAT IRRITATION [None]
